FAERS Safety Report 4481911-8 (Version None)
Quarter: 2004Q4

REPORT INFORMATION
  Report Type: 
  Country: None (occurrence: None)
  Receive Date: 20041022
  Receipt Date: 20040615
  Transmission Date: 20050328
  Serious: Yes (Other)
  Sender: FDA-Public Use
  Company Number: JP-JNJFOC-20040103678

PATIENT
  Sex: Female
  Weight: 46 kg

DRUGS (13)
  1. REMICADE [Suspect]
     Route: 041
  2. REMICADE [Suspect]
     Route: 041
  3. REMICADE [Suspect]
     Route: 041
  4. REMICADE [Suspect]
     Route: 041
  5. REMICADE [Suspect]
     Indication: RHEUMATOID ARTHRITIS
     Route: 041
  6. LOXONIN [Concomitant]
     Indication: RHEUMATOID ARTHRITIS
     Route: 049
     Dates: start: 20030828
  7. VOLTAREN [Concomitant]
     Indication: RHEUMATOID ARTHRITIS
     Dosage: 22-50MG A DAY
     Route: 054
     Dates: start: 20030828
  8. SELBEX [Concomitant]
     Indication: DRUG USE FOR UNKNOWN INDICATION
     Route: 049
     Dates: start: 20030828
  9. THYRADIN S [Concomitant]
     Indication: DRUG USE FOR UNKNOWN INDICATION
     Route: 049
     Dates: start: 20030926
  10. PROVERA [Concomitant]
     Indication: DRUG USE FOR UNKNOWN INDICATION
     Route: 049
     Dates: start: 20030924
  11. PREMARIN [Concomitant]
     Indication: DRUG USE FOR UNKNOWN INDICATION
     Route: 049
     Dates: start: 20030924
  12. RHEUMATREX [Concomitant]
     Indication: RHEUMATOID ARTHRITIS
     Route: 049
  13. PREDONINE [Concomitant]
     Indication: RHEUMATOID ARTHRITIS
     Route: 049
     Dates: start: 20030814

REACTIONS (7)
  - DRUG INEFFECTIVE [None]
  - DRUG INTERACTION [None]
  - FUNGAEMIA [None]
  - PERIANAL ABSCESS [None]
  - PLATELET COUNT INCREASED [None]
  - PROTEIN TOTAL DECREASED [None]
  - WHITE BLOOD CELL COUNT INCREASED [None]
